FAERS Safety Report 6376868-9 (Version None)
Quarter: 2009Q3

REPORT INFORMATION
  Report Type: 
  Country: None (occurrence: None)
  Receive Date: 20090921
  Receipt Date: 20090903
  Transmission Date: 20100115
  Serious: Yes (Hospitalization)
  Sender: FDA-Public Use
  Company Number: 2009S1015704

PATIENT
  Age: 55 Year
  Sex: Male

DRUGS (9)
  1. RANITIDINE [Suspect]
     Indication: DRUG USE FOR UNKNOWN INDICATION
     Dosage: 300 MG;ORAL;TWICE A DAY
     Route: 048
     Dates: start: 20090716, end: 20090722
  2. BISOPROLOL FUMARATE [Concomitant]
  3. FRAGMIN (HEPARIN-FRACTION) [Concomitant]
  4. LOPERAMIDE HYDROCHLORIDE (LOPERAMIDE CHLORIDE) [Concomitant]
  5. NICORANDIL (NICORANDIL) [Concomitant]
  6. QUININE SULPHATE (QUININE SULPHATE) [Concomitant]
  7. SIMVASTATIN [Concomitant]
  8. ZOPICLONE (ZOPICLONE) [Concomitant]
  9. CLOPIDOGREL [Concomitant]

REACTIONS (1)
  - RENAL FAILURE ACUTE [None]
